FAERS Safety Report 10441320 (Version 1)
Quarter: 2014Q3

REPORT INFORMATION
  Report Type: Spontaneous
  Country: US (occurrence: US)
  Receive Date: 20140909
  Receipt Date: 20140909
  Transmission Date: 20150326
  Serious: Yes (Other)
  Sender: FDA-Public Use
  Company Number: US-SHIRE-US201405667

PATIENT
  Sex: Male

DRUGS (1)
  1. PENTASA [Suspect]
     Active Substance: MESALAMINE
     Indication: CROHN^S DISEASE
     Dosage: 1000 MG 1000 MG (TWO 500 MG CAPSULES), 3X/DAY:TID
     Route: 048
     Dates: start: 2006

REACTIONS (4)
  - Condition aggravated [Recovered/Resolved]
  - Intestinal stenosis [Recovered/Resolved]
  - Off label use [Not Recovered/Not Resolved]
  - Abdominal pain [Recovered/Resolved]

NARRATIVE: CASE EVENT DATE: 2006
